FAERS Safety Report 7760279-5 (Version None)
Quarter: 2011Q3

REPORT INFORMATION
  Report Type: 
  Country: None (occurrence: None)
  Receive Date: 20110919
  Receipt Date: 20110909
  Transmission Date: 20111222
  Serious: Yes (Hospitalization, Other)
  Sender: FDA-Public Use
  Company Number: CA-ABBOTT-11P-028-0847649-00

PATIENT
  Age: 56 Year
  Sex: Female

DRUGS (35)
  1. HUMIRA [Suspect]
     Indication: UVEITIS
     Route: 058
     Dates: start: 20110503, end: 20110804
  2. PREDNISONE [Suspect]
     Route: 048
     Dates: start: 20110614, end: 20110620
  3. PREDNISONE [Suspect]
     Route: 048
     Dates: start: 20110705, end: 20110711
  4. PREDNISONE [Suspect]
     Route: 048
     Dates: start: 20110719, end: 20110725
  5. PREDNISONE [Suspect]
     Route: 048
     Dates: start: 20110809, end: 20110814
  6. OMEPRAZOLE [Concomitant]
     Indication: PROPHYLAXIS
     Dates: start: 20080516
  7. PYRIDOXINE HCL [Concomitant]
     Indication: GAMMA INTERFERON THERAPY
  8. SEPTRA DS [Concomitant]
     Indication: URINARY TRACT INFECTION
     Dates: start: 20110603, end: 20110613
  9. ACULAR [Concomitant]
     Indication: UVEITIS
     Route: 047
     Dates: start: 20070701
  10. PREDNISONE [Suspect]
     Route: 048
     Dates: start: 20110628, end: 20110704
  11. PREDNISONE [Suspect]
     Route: 048
     Dates: start: 20110726, end: 20110801
  12. METFORMIN HCL [Concomitant]
     Indication: TYPE 2 DIABETES MELLITUS
     Dates: start: 20090313
  13. DIABETA [Concomitant]
     Indication: HYPERGLYCAEMIA
     Dates: start: 20110513
  14. PYRIDOXINE HCL [Concomitant]
     Indication: PROPHYLAXIS
     Dates: start: 20110531
  15. IMURAN [Concomitant]
     Indication: UVEITIS
     Route: 048
     Dates: start: 20070905
  16. ASAPHENC [Concomitant]
     Indication: CARDIOVASCULAR EVENT PROPHYLAXIS
     Dates: start: 20080125
  17. RAMIPRIL [Concomitant]
     Indication: CARDIOVASCULAR EVENT PROPHYLAXIS
     Dates: start: 20080125
  18. MYCOPHENOLATE MOFETIL (CELLCEPT) [Concomitant]
     Route: 048
     Dates: start: 20070926
  19. KENALOG [Concomitant]
     Indication: UVEITIS
     Dates: start: 20090305
  20. PREDNISONE [Suspect]
     Route: 048
     Dates: start: 20110621, end: 20110627
  21. DIABETA [Concomitant]
     Indication: TYPE 2 DIABETES MELLITUS
  22. CENTRUM [Concomitant]
     Indication: VITAMIN SUPPLEMENTATION
     Dates: start: 20110531
  23. MYCOPHENOLATE MOFETIL (CELLCEPT) [Concomitant]
     Indication: UVEITIS
     Route: 048
     Dates: start: 20100924
  24. PREDNISONE [Concomitant]
     Route: 048
     Dates: start: 20081113
  25. PREDNISONE [Suspect]
     Route: 048
     Dates: start: 20110530, end: 20110613
  26. PREDNISONE [Suspect]
     Route: 048
     Dates: start: 20110802, end: 20110808
  27. CRESTOR [Concomitant]
     Indication: DYSLIPIDAEMIA
     Dates: start: 20080125
  28. NEORAL [Concomitant]
     Indication: UVEITIS
     Route: 048
     Dates: start: 20080529
  29. PREDNISONE [Concomitant]
     Route: 048
     Dates: start: 20080516
  30. PREDNISONE [Suspect]
     Indication: UVEITIS
     Route: 048
     Dates: start: 20110504, end: 20110511
  31. PREDNISONE [Suspect]
     Route: 048
     Dates: start: 20110512, end: 20110529
  32. PREDNISONE [Suspect]
     Route: 048
     Dates: start: 20110712, end: 20110718
  33. OMEPRAZOLE [Concomitant]
     Indication: ABDOMINAL DISCOMFORT
  34. INH [Concomitant]
     Indication: ANTIBIOTIC PROPHYLAXIS
     Dates: start: 20110428
  35. METFORMIN HCL [Concomitant]
     Indication: HYPERGLYCAEMIA

REACTIONS (1)
  - PERICARDITIS [None]
